FAERS Safety Report 22206437 (Version 1)
Quarter: 2023Q2

REPORT INFORMATION
  Report Type: Spontaneous
  Country: US (occurrence: None)
  Receive Date: 20230412
  Receipt Date: 20230412
  Transmission Date: 20230721
  Serious: Yes (Other)
  Sender: FDA-Public Use
  Company Number: None

PATIENT
  Age: 54 Year
  Sex: Female

DRUGS (2)
  1. CYANOCOBALAMIN\SEMAGLUTIDE [Suspect]
     Active Substance: CYANOCOBALAMIN\SEMAGLUTIDE
     Indication: Obesity
     Dosage: OTHER FREQUENCY : WEEKLY;?
     Route: 058
     Dates: start: 20230326, end: 20230330
  2. emtricitabine/tenofovir 200/300 mg [Concomitant]

REACTIONS (8)
  - Product distribution issue [None]
  - Product storage error [None]
  - Fatigue [None]
  - Lethargy [None]
  - Vision blurred [None]
  - Nausea [None]
  - Vomiting [None]
  - Fluid intake reduced [None]

NARRATIVE: CASE EVENT DATE: 20230330
